FAERS Safety Report 5930546-6 (Version None)
Quarter: 2008Q4

REPORT INFORMATION
  Report Type: 
  Country: None (occurrence: None)
  Receive Date: 20081026
  Receipt Date: 20081024
  Transmission Date: 20090506
  Serious: Yes (Hospitalization, Disabling)
  Sender: FDA-Public Use
  Company Number: PHHO2002ES09856

PATIENT
  Sex: Female
  Weight: 68 kg

DRUGS (2)
  1. NEORAL [Suspect]
     Indication: RENAL TRANSPLANT
     Dosage: 250 MG, BID
     Route: 048
     Dates: start: 20021125, end: 20021204
  2. PLACEBO PLACEBO [Suspect]
     Indication: RENAL TRANSPLANT
     Route: 048
     Dates: start: 20021126

REACTIONS (9)
  - HAEMOLYTIC URAEMIC SYNDROME [None]
  - HYPERCHOLESTEROLAEMIA [None]
  - KIDNEY TRANSPLANT REJECTION [None]
  - NEUROPATHY PERIPHERAL [None]
  - PROTEINURIA [None]
  - RENAL FAILURE ACUTE [None]
  - RENAL HAEMATOMA [None]
  - THROMBOCYTOPENIA [None]
  - THROMBOTIC MICROANGIOPATHY [None]
